FAERS Safety Report 25138234 (Version 2)
Quarter: 2025Q4

REPORT INFORMATION
  Report Type: Spontaneous
  Country: EU (occurrence: EU)
  Receive Date: 20250330
  Receipt Date: 20251121
  Transmission Date: 20260117
  Serious: Yes (Hospitalization, Disabling, Other)
  Sender: MERCK SHARP & DOHME LLC
  Company Number: EU-BAYER-2025A030051

PATIENT
  Sex: Male
  Weight: 83 kg

DRUGS (14)
  1. SOTATERCEPT [Suspect]
     Active Substance: SOTATERCEPT
     Indication: Pulmonary arterial hypertension
     Dosage: 0.7 MG/KG
     Route: 058
     Dates: start: 20241126, end: 20250226
  2. SOTATERCEPT [Suspect]
     Active Substance: SOTATERCEPT
     Indication: Pulmonary arterial hypertension
  3. SOTATERCEPT [Suspect]
     Active Substance: SOTATERCEPT
  4. SOTATERCEPT [Suspect]
     Active Substance: SOTATERCEPT
  5. FOSTER [Concomitant]
     Active Substance: BECLOMETHASONE\FORMOTEROL
     Dosage: 100/6 Y,TG 1-0-1
  6. PANTOPRAZOLE [Concomitant]
     Active Substance: PANTOPRAZOLE
     Dosage: 20 MG
  7. PANTOPRAZOLE [Concomitant]
     Active Substance: PANTOPRAZOLE
     Dosage: 40 MG
  8. amitriptyline hydrochloride Tablet [Concomitant]
     Dosage: 60 MG
  9. OXYGEN [Concomitant]
     Active Substance: OXYGEN
     Dosage: 16 HOURS/DAY
     Dates: start: 2022
  10. EPLERENONE [Concomitant]
     Active Substance: EPLERENONE
  11. SELEXIPAG [Concomitant]
     Active Substance: SELEXIPAG
     Indication: Pulmonary arterial hypertension
     Dosage: 2 X 2000
     Dates: start: 201705
  12. IVABRADINE [Concomitant]
     Active Substance: IVABRADINE
  13. MACITENTAN [Concomitant]
     Active Substance: MACITENTAN
     Indication: Pulmonary arterial hypertension
     Dosage: 10 MG
     Dates: start: 201702
  14. ADEMPAS [Suspect]
     Active Substance: RIOCIGUAT
     Indication: Pulmonary arterial hypertension
     Dosage: 2.5 MG
     Route: 048
     Dates: start: 201905

REACTIONS (6)
  - Visual impairment [Not Recovered/Not Resolved]
  - Retinal detachment [Recovered/Resolved with Sequelae]
  - Blindness [Unknown]
  - Central serous chorioretinopathy [Unknown]
  - Vogt-Koyanagi-Harada disease [Recovered/Resolved with Sequelae]
  - Visual impairment [Not Recovered/Not Resolved]

NARRATIVE: CASE EVENT DATE: 20240101
